FAERS Safety Report 9495114 (Version 2)
Quarter: 2013Q3

REPORT INFORMATION
  Report Type: Report from Study
  Country: CA (occurrence: CA)
  Receive Date: 20130903
  Receipt Date: 20130903
  Transmission Date: 20140515
  Serious: Yes (Hospitalization)
  Sender: FDA-Public Use
  Company Number: CA-IPSEN BIOPHARMACEUTICALS, INC.-2013-3390

PATIENT
  Age: 57 Year
  Sex: Male

DRUGS (2)
  1. SOMATULINE [Suspect]
     Indication: CARCINOID SYNDROME
     Dosage: 240 MG
     Route: 058
  2. SOMATULINE [Suspect]
     Dosage: 120 MG
     Route: 058
     Dates: start: 20111023

REACTIONS (3)
  - Adverse event [Unknown]
  - Abdominal pain upper [Unknown]
  - Overdose [Unknown]
